FAERS Safety Report 24314142 (Version 1)
Quarter: 2024Q3

REPORT INFORMATION
  Report Type: Spontaneous
  Country: BR (occurrence: BR)
  Receive Date: 20240912
  Receipt Date: 20240912
  Transmission Date: 20241016
  Serious: Yes (Death, Hospitalization, Other)
  Sender: BIOMARIN
  Company Number: BR-SA-2024SA256656

PATIENT

DRUGS (5)
  1. ALDURAZYME [Suspect]
     Active Substance: LARONIDASE
     Indication: Mucopolysaccharidosis I
     Dosage: 1.2 MG/KG, QW
     Route: 042
     Dates: start: 20050201
  2. ALDURAZYME [Suspect]
     Active Substance: LARONIDASE
     Dosage: 43 (FORTY-THREE) WEEKLY INFUSIONS AT A DOSE OF 0.58 MG/KG
     Route: 042
     Dates: start: 20050922, end: 20061010
  3. ALDURAZYME [Suspect]
     Active Substance: LARONIDASE
     Dosage: AT THE STANDARD DOSE
     Route: 042
     Dates: start: 20061019, end: 20061116
  4. FUROSEMIDE [Suspect]
     Active Substance: FUROSEMIDE
     Indication: Cardiomyopathy
     Dosage: UNK
     Route: 065
     Dates: start: 20040414
  5. CAPTOPRIL [Suspect]
     Active Substance: CAPTOPRIL
     Indication: Cardiomyopathy
     Dosage: UNKNOWN
     Route: 065
     Dates: start: 20040414

REACTIONS (6)
  - Respiratory failure [Fatal]
  - Respiratory distress [Fatal]
  - Pneumonia [Unknown]
  - Urinary glycosaminoglycans increased [Unknown]
  - Upper respiratory tract infection [Unknown]
  - Incorrect dose administered [Unknown]

NARRATIVE: CASE EVENT DATE: 20050901
